FAERS Safety Report 6588296-1 (Version None)
Quarter: 2010Q1

REPORT INFORMATION
  Report Type: 
  Country: None (occurrence: None)
  Receive Date: 20100218
  Receipt Date: 20100210
  Transmission Date: 20100710
  Serious: Yes (Hospitalization)
  Sender: FDA-Public Use
  Company Number: CA-ROCHE-494031

PATIENT
  Sex: Male
  Weight: 94.2 kg

DRUGS (12)
  1. TOCILIZUMAB [Suspect]
     Indication: RHEUMATOID ARTHRITIS
     Dosage: BATCH NUMBER MR6C01 ALSO USED.DOSE WEEK 84 WILL NOT BE GIVEN.DRUG TEMPORARILY DISCONTINUED.
     Route: 042
     Dates: start: 20050915, end: 20090910
  2. TOCILIZUMAB [Suspect]
     Route: 042
     Dates: start: 20091105
  3. BLINDED TOCILIZUMAB [Suspect]
     Indication: RHEUMATOID ARTHRITIS
     Dosage: DOSE BLINDED
     Route: 042
  4. NAPROXEN [Concomitant]
     Dates: start: 20041014
  5. NAPROXEN [Concomitant]
     Dates: start: 20070902
  6. FOLIC ACID [Concomitant]
     Dosage: DOSE RPTD AS 5 MG/WEEK
     Dates: start: 20041014
  7. METHOTREXATE [Concomitant]
     Dosage: DOSE RPTD AS 20 MG/WEEK
     Dates: start: 20041202, end: 20090829
  8. METHOTREXATE [Concomitant]
     Dates: start: 20091020
  9. TYLENOL W/ CODEINE NO. 1 [Concomitant]
     Dates: start: 20031101
  10. XANAX [Concomitant]
     Dates: start: 19970101, end: 20090829
  11. LOZIDE [Concomitant]
     Dates: start: 19990701
  12. LOSEC [Concomitant]
     Dates: start: 20070104, end: 20090129

REACTIONS (3)
  - CELLULITIS [None]
  - CELLULITIS STAPHYLOCOCCAL [None]
  - FASCIITIS [None]
